FAERS Safety Report 17768628 (Version 2)
Quarter: 2020Q2

REPORT INFORMATION
  Report Type: Report from Study
  Country: CA (occurrence: CA)
  Receive Date: 20200512
  Receipt Date: 20200603
  Transmission Date: 20200714
  Serious: Yes (Death)
  Sender: FDA-Public Use
  Company Number: CA-BIOGEN-2020BI00872545

PATIENT
  Sex: Female

DRUGS (1)
  1. SPINRAZA [Suspect]
     Active Substance: NUSINERSEN
     Indication: SPINAL MUSCULAR ATROPHY
     Dosage: 12MG/5ML DAYS 0, 14, 28, 58, THEN EVERY 4 MONTHS THEREAFTER
     Route: 065
     Dates: start: 20200123

REACTIONS (2)
  - Death [Fatal]
  - Respiratory symptom [Unknown]
